FAERS Safety Report 5633707-9 (Version None)
Quarter: 2008Q1

REPORT INFORMATION
  Report Type: 
  Country: None (occurrence: None)
  Receive Date: 20080131
  Receipt Date: 20071106
  Transmission Date: 20080703
  Serious: No
  Sender: FDA-Public Use
  Company Number: 163-21880-07100659

PATIENT
  Age: 82 Year
  Sex: Male

DRUGS (2)
  1. REVLIMID [Suspect]
     Indication: MULTIPLE MYELOMA
     Dosage: 25 MG, DAILY 21/28 DAYS, ORAL ; UNKNOWN LOWER DOSE, ORAL
     Route: 048
     Dates: start: 20070711, end: 20070901
  2. REVLIMID [Suspect]
     Indication: MULTIPLE MYELOMA
     Dosage: 25 MG, DAILY 21/28 DAYS, ORAL ; UNKNOWN LOWER DOSE, ORAL
     Route: 048
     Dates: start: 20071109

REACTIONS (5)
  - NEUTROPENIA [None]
  - ORAL FUNGAL INFECTION [None]
  - PYREXIA [None]
  - THROMBOCYTOPENIA [None]
  - TREMOR [None]
